FAERS Safety Report 7927462-7 (Version None)
Quarter: 2011Q4

REPORT INFORMATION
  Report Type: 
  Country: None (occurrence: None)
  Receive Date: 20111118
  Receipt Date: 20111108
  Transmission Date: 20120403
  Serious: Yes (Hospitalization)
  Sender: FDA-Public Use
  Company Number: US-BAYER-2011-044892

PATIENT
  Age: 35 Year
  Sex: Female

DRUGS (3)
  1. MULTIVITE [VITAMINS NOS] [Concomitant]
     Route: 048
  2. ZOLOFT [Concomitant]
     Dosage: UNK
     Route: 048
     Dates: start: 19970101
  3. YASMIN [Suspect]
     Indication: PREMENSTRUAL SYNDROME
     Dosage: UNK
     Dates: start: 20020701, end: 20020901

REACTIONS (7)
  - INJURY [None]
  - EMOTIONAL DISTRESS [None]
  - DEEP VEIN THROMBOSIS [None]
  - PULMONARY EMBOLISM [None]
  - PAIN [None]
  - ANXIETY [None]
  - GENERAL PHYSICAL HEALTH DETERIORATION [None]
